FAERS Safety Report 5452644-6 (Version None)
Quarter: 2007Q3

REPORT INFORMATION
  Report Type: 
  Country: None (occurrence: None)
  Receive Date: 20070914
  Receipt Date: 20070910
  Transmission Date: 20080115
  Serious: Yes (Other)
  Sender: FDA-Public Use
  Company Number: TR-BRISTOL-MYERS SQUIBB COMPANY-13904982

PATIENT

DRUGS (3)
  1. IFOSFAMIDE [Suspect]
  2. CISPLATIN [Suspect]
  3. METHOTREXATE [Suspect]

REACTIONS (2)
  - BLOOD TEST ABNORMAL [None]
  - HORMONE LEVEL ABNORMAL [None]
